FAERS Safety Report 16751373 (Version 3)
Quarter: 2021Q2

REPORT INFORMATION
  Report Type: Spontaneous
  Country: JP (occurrence: JP)
  Receive Date: 20190828
  Receipt Date: 20210405
  Transmission Date: 20210716
  Serious: Yes (Death, Other)
  Sender: FDA-Public Use
  Company Number: JP-ASTRAZENECA-2019SF21144

PATIENT
  Age: 27729 Day
  Sex: Male
  Weight: 57 kg

DRUGS (6)
  1. IMFINZI [Suspect]
     Active Substance: DURVALUMAB
     Indication: NON-SMALL CELL LUNG CANCER
     Route: 041
     Dates: start: 20190724, end: 20190724
  2. JANUVIA [Concomitant]
     Active Substance: SITAGLIPTIN PHOSPHATE
     Route: 048
     Dates: start: 20190724, end: 20190808
  3. VOGLIBOSE [Concomitant]
     Active Substance: VOGLIBOSE
     Route: 048
     Dates: start: 20190724, end: 20190731
  4. VOGLIBOSE [Concomitant]
     Active Substance: VOGLIBOSE
     Route: 048
     Dates: start: 20190724, end: 20190808
  5. THYRADIN?S POWDER [Concomitant]
     Route: 048
     Dates: start: 20190724, end: 20190808
  6. NEXIUM [Concomitant]
     Active Substance: ESOMEPRAZOLE MAGNESIUM
     Route: 048
     Dates: start: 20190724, end: 20190808

REACTIONS (7)
  - Cardio-respiratory arrest [Fatal]
  - Radiation pneumonitis [Recovering/Resolving]
  - Hypoxic-ischaemic encephalopathy [Unknown]
  - Interstitial lung disease [Fatal]
  - Dizziness [Unknown]
  - Cardiac failure [Unknown]
  - Oedema peripheral [Unknown]

NARRATIVE: CASE EVENT DATE: 20190729
